FAERS Safety Report 25046716 (Version 1)
Quarter: 2025Q1

REPORT INFORMATION
  Report Type: Spontaneous
  Country: GB (occurrence: GB)
  Receive Date: 20250306
  Receipt Date: 20250306
  Transmission Date: 20250409
  Serious: Yes (Other)
  Sender: ASCEND THERAPEUTICS US, LLC
  Company Number: GB-Ascend Therapeutics US, LLC-2172319

PATIENT
  Sex: Female

DRUGS (2)
  1. ESTROGEL [Suspect]
     Active Substance: ESTRADIOL
     Indication: Menopause
     Dates: start: 20250101, end: 20250212
  2. ESTRADIOL [Suspect]
     Active Substance: ESTRADIOL
     Dates: start: 20250101, end: 20250212

REACTIONS (4)
  - Lip swelling [Not Recovered/Not Resolved]
  - Intermenstrual bleeding [Unknown]
  - Breast swelling [Unknown]
  - Medication error [Unknown]
